FAERS Safety Report 15626759 (Version 1)
Quarter: 2018Q4

REPORT INFORMATION
  Report Type: Spontaneous
  Country: US (occurrence: US)
  Receive Date: 20181116
  Receipt Date: 20181116
  Transmission Date: 20190205
  Serious: Yes (Other)
  Sender: FDA-Public Use
  Company Number: US-SA-2018SA310816

PATIENT
  Age: 60 Year
  Sex: Female

DRUGS (2)
  1. ADVIL 12HOUR [Concomitant]
     Route: 065
  2. ZANTAC [Suspect]
     Active Substance: RANITIDINE HYDROCHLORIDE
     Indication: DYSPEPSIA
     Dosage: 150 MG, BID
     Route: 065

REACTIONS (1)
  - Urine amphetamine positive [Unknown]
